FAERS Safety Report 5175355-3 (Version None)
Quarter: 2006Q4

REPORT INFORMATION
  Report Type: 
  Country: None (occurrence: None)
  Receive Date: 20061212
  Receipt Date: 20061212
  Transmission Date: 20070319
  Serious: Yes (Hospitalization)
  Sender: FDA-Public Use
  Company Number: None

PATIENT
  Age: 52 Year
  Sex: Female

DRUGS (2)
  1. LEVOFLOXACIN [Suspect]
     Indication: URINARY TRACT INFECTION
     Dosage: 150MG BY MOUTH DAILY
     Route: 048
     Dates: start: 20060815, end: 20060818
  2. DOFETILIDE [Suspect]
     Indication: VENTRICULAR EXTRASYSTOLES

REACTIONS (5)
  - CEREBRAL ISCHAEMIA [None]
  - CONVULSION [None]
  - ELECTROCARDIOGRAM QT PROLONGED [None]
  - HEART RATE DECREASED [None]
  - TRANSIENT ISCHAEMIC ATTACK [None]
